FAERS Safety Report 4412346-1 (Version None)
Quarter: 2004Q3

REPORT INFORMATION
  Report Type: 
  Country: None (occurrence: None)
  Receive Date: 20040730
  Receipt Date: 20040721
  Transmission Date: 20050211
  Serious: Yes (Death)
  Sender: FDA-Public Use
  Company Number: NO-MERCK-0407NOR00044

PATIENT
  Age: 85 Year
  Sex: Female

DRUGS (9)
  1. FOSAMAX [Concomitant]
     Route: 048
     Dates: start: 19971201
  2. ASPIRIN AND MAGNESIUM OXIDE [Concomitant]
     Route: 065
     Dates: start: 19940901
  3. BENSERAZIDE HYDROCHLORIDE AND LEVODOPA [Concomitant]
     Route: 065
     Dates: start: 19910201
  4. CALCIUM CARBONATE [Concomitant]
     Route: 065
     Dates: start: 19990301
  5. FLUPENTIXOL HYDROCHLORIDE [Concomitant]
     Route: 065
     Dates: start: 19900201
  6. ISOSORBIDE MONONITRATE [Concomitant]
     Route: 065
     Dates: start: 20031101
  7. COZAAR [Concomitant]
     Route: 048
     Dates: start: 19980201
  8. VIOXX [Suspect]
     Route: 048
     Dates: start: 20040414, end: 20040429
  9. ZOPICLONE [Concomitant]
     Route: 065
     Dates: start: 20031001

REACTIONS (2)
  - ABDOMINAL PAIN [None]
  - VOMITING [None]
